FAERS Safety Report 18031398 (Version 1)
Quarter: 2020Q3

REPORT INFORMATION
  Report Type: Spontaneous
  Country: US (occurrence: US)
  Receive Date: 20200715
  Receipt Date: 20200715
  Transmission Date: 20201103
  Serious: Yes (Hospitalization)
  Sender: FDA-Public Use
  Company Number: None

PATIENT
  Sex: Female

DRUGS (2)
  1. CAPECITABINE 500MG [Suspect]
     Active Substance: CAPECITABINE
     Indication: RENAL CANCER
     Route: 048
     Dates: start: 20200425
  2. CAPECITABINE 150MG [Suspect]
     Active Substance: CAPECITABINE
     Indication: RENAL CANCER
     Route: 048
     Dates: start: 20200425

REACTIONS (1)
  - Cancer surgery [None]
